FAERS Safety Report 5158696-5 (Version None)
Quarter: 2006Q4

REPORT INFORMATION
  Report Type: 
  Country: None (occurrence: None)
  Receive Date: 20061116
  Receipt Date: 20061101
  Transmission Date: 20070319
  Serious: Yes (Other)
  Sender: FDA-Public Use
  Company Number: 061101-0000944

PATIENT
  Age: 17 Year
  Sex: Male

DRUGS (5)
  1. L-ASPARAGINASE (ASPARAGINASE) [Suspect]
     Indication: ACUTE LYMPHOCYTIC LEUKAEMIA
     Dosage: SEE  IMAGE
  2. PREDNISONE TAB [Suspect]
     Indication: ACUTE LYMPHOCYTIC LEUKAEMIA
     Dosage: SEE IMAGE
  3. VINCRISTINE [Concomitant]
  4. DAUNORUBICIN HCL [Concomitant]
  5. DOXORUBICIN HCL [Concomitant]

REACTIONS (6)
  - BONE MARROW FAILURE [None]
  - DEEP VEIN THROMBOSIS [None]
  - GENERAL PHYSICAL HEALTH DETERIORATION [None]
  - ILIAC VEIN OCCLUSION [None]
  - LEUKAEMIA RECURRENT [None]
  - SEPTIC SHOCK [None]
